FAERS Safety Report 9890891 (Version 1)
Quarter: 2014Q1

REPORT INFORMATION
  Report Type: Spontaneous
  Country: IT (occurrence: None)
  Receive Date: 20140210
  Receipt Date: 20140210
  Transmission Date: 20141002
  Serious: Yes (Other)
  Sender: FDA-Public Use
  Company Number: 2014P1000831

PATIENT
  Age: 34 Year
  Sex: 0

DRUGS (2)
  1. EPHEDRINE [Suspect]
     Dosage: QD.
  2. CAFFEINE [Suspect]
     Route: 048

REACTIONS (6)
  - Drug abuse [None]
  - Palpitations [None]
  - Ventricular extrasystoles [None]
  - Bundle branch block left [None]
  - Ventricular extrasystoles [None]
  - Myocardial necrosis [None]
